FAERS Safety Report 7901449-2 (Version None)
Quarter: 2011Q4

REPORT INFORMATION
  Report Type: 
  Country: None (occurrence: None)
  Receive Date: 20111108
  Receipt Date: 20111103
  Transmission Date: 20120403
  Serious: Yes (Other)
  Sender: FDA-Public Use
  Company Number: US-JNJFOC-20110907784

PATIENT
  Sex: Female
  Weight: 73.48 kg

DRUGS (1)
  1. LEVAQUIN [Suspect]
     Indication: SINUSITIS
     Route: 048
     Dates: start: 20101226, end: 20110108

REACTIONS (4)
  - TENDONITIS [None]
  - CONDITION AGGRAVATED [None]
  - TENDON DISORDER [None]
  - PAIN [None]
